FAERS Safety Report 8954680 (Version 1)
Quarter: 2012Q4

REPORT INFORMATION
  Report Type: 
  Country: US (occurrence: US)
  Receive Date: 20121207
  Receipt Date: 20121207
  Transmission Date: 20130627
  Serious: No
  Sender: FDA-Public Use
  Company Number: US-GLAXOSMITHKLINE-A0928692A

PATIENT
  Age: 46 Year
  Sex: Male

DRUGS (1)
  1. AVANDAMET [Suspect]
     Indication: DIABETES MELLITUS
     Route: 048
     Dates: start: 20050101, end: 20090101

REACTIONS (4)
  - Cardiac disorder [Not Recovered/Not Resolved]
  - Palpitations [Unknown]
  - Dyspnoea [Unknown]
  - Chest pain [Unknown]
